FAERS Safety Report 13429203 (Version 1)
Quarter: 2017Q2

REPORT INFORMATION
  Report Type: Report from Study
  Country: US (occurrence: US)
  Receive Date: 20170411
  Receipt Date: 20170411
  Transmission Date: 20170830
  Serious: No
  Sender: FDA-Public Use
  Company Number: PHEH2017US009778

PATIENT
  Sex: Male

DRUGS (3)
  1. PIROXICAM. [Concomitant]
     Active Substance: PIROXICAM
     Indication: INFLAMMATION
     Route: 065
  2. COSENTYX [Suspect]
     Active Substance: SECUKINUMAB
     Indication: PRODUCT USED FOR UNKNOWN INDICATION
     Dosage: 150 MG/ML, QW
     Route: 065
     Dates: start: 20170225
  3. COSENTYX [Suspect]
     Active Substance: SECUKINUMAB
     Dosage: 150 MG/ML, QMO (EVERY 4 WEEKS)
     Route: 065

REACTIONS (6)
  - Throat irritation [Unknown]
  - Dysphagia [Unknown]
  - Injection site reaction [Unknown]
  - Pruritus [Unknown]
  - Urticaria [Unknown]
  - Injection site pruritus [Unknown]
